FAERS Safety Report 7671305-6 (Version None)
Quarter: 2011Q3

REPORT INFORMATION
  Report Type: 
  Country: None (occurrence: None)
  Receive Date: 20110809
  Receipt Date: 20110804
  Transmission Date: 20111222
  Serious: Yes (Hospitalization)
  Sender: FDA-Public Use
  Company Number: US-GILEAD-2011-0037225

PATIENT
  Sex: Female

DRUGS (2)
  1. LETAIRIS [Suspect]
     Indication: PULMONARY HYPERTENSION
     Route: 048
     Dates: start: 20090624
  2. LETAIRIS [Suspect]
     Indication: SCLERODERMA

REACTIONS (6)
  - ANXIETY [None]
  - OROPHARYNGEAL BLISTERING [None]
  - DYSPNOEA [None]
  - SWELLING FACE [None]
  - TOOTH DISORDER [None]
  - INFECTION [None]
